FAERS Safety Report 18993152 (Version 1)
Quarter: 2021Q1

REPORT INFORMATION
  Report Type: Spontaneous
  Country: FI (occurrence: FI)
  Receive Date: 20210310
  Receipt Date: 20210310
  Transmission Date: 20210420
  Serious: Yes (Disabling, Other)
  Sender: FDA-Public Use
  Company Number: FI-PURDUE-USA-2021-0230877

PATIENT
  Age: 80 Year
  Sex: Female

DRUGS (11)
  1. DAKTARIN                           /00310802/ [Concomitant]
     Active Substance: MICONAZOLE NITRATE
  2. KLEXANE [Concomitant]
     Active Substance: ENOXAPARIN
     Dosage: UNK
     Route: 058
     Dates: start: 20200510, end: 20200531
  3. DISPERIN                           /00002701/ [Concomitant]
     Dosage: 100 MG, DAILY
     Route: 048
     Dates: start: 20200605
  4. MALTOFER                           /00023548/ [Concomitant]
     Active Substance: IRON POLYMALTOSE
     Route: 048
     Dates: start: 20200601
  5. PEGORION [Concomitant]
     Active Substance: POLYETHYLENE GLYCOL 4000
     Dosage: UNK
     Route: 048
  6. OXYNORM [Suspect]
     Active Substance: OXYCODONE HYDROCHLORIDE
     Indication: BACK PAIN
     Dosage: UNK
     Route: 048
     Dates: start: 20200416, end: 20200722
  7. TARGINIQ ER [Suspect]
     Active Substance: NALOXONE HYDROCHLORIDE\OXYCODONE HYDROCHLORIDE
     Indication: BACK PAIN
     Dosage: UNK
     Route: 048
     Dates: start: 20200510, end: 20200616
  8. LOSARTAN                           /01121602/ [Concomitant]
     Active Substance: LOSARTAN
     Indication: HYPERTENSION
     Dosage: 25 MG, DAILY
     Route: 048
     Dates: start: 2020
  9. DONEPEZIL                          /01318902/ [Concomitant]
     Active Substance: DONEPEZIL
     Indication: MEMORY IMPAIRMENT
     Dosage: UNK
     Route: 048
     Dates: start: 2018, end: 20200804
  10. PARA?TABS [Concomitant]
     Active Substance: ACETAMINOPHEN
     Indication: BACK PAIN
     Dosage: UNK
     Route: 048
     Dates: start: 20200416
  11. MEMANTINE                          /00646902/ [Concomitant]
     Active Substance: MEMANTINE HYDROCHLORIDE
     Indication: MEMORY IMPAIRMENT
     Dosage: UNK
     Route: 048
     Dates: start: 2020

REACTIONS (7)
  - Muscle spasms [Recovered/Resolved with Sequelae]
  - Fatigue [Recovered/Resolved with Sequelae]
  - Musculoskeletal stiffness [Recovered/Resolved with Sequelae]
  - Dysarthria [Recovered/Resolved with Sequelae]
  - Dysphagia [Recovered/Resolved with Sequelae]
  - Immobile [Recovered/Resolved with Sequelae]
  - Pain in extremity [Recovered/Resolved with Sequelae]

NARRATIVE: CASE EVENT DATE: 20200510
